FAERS Safety Report 15618765 (Version 2)
Quarter: 2018Q4

REPORT INFORMATION
  Report Type: Spontaneous
  Country: US (occurrence: US)
  Receive Date: 20181114
  Receipt Date: 20181126
  Transmission Date: 20190205
  Serious: Yes (Other)
  Sender: FDA-Public Use
  Company Number: US-FDC LIMITED-2018RIS00500

PATIENT
  Sex: Female
  Weight: 56.69 kg

DRUGS (18)
  1. FAMOTIDINE. [Concomitant]
     Active Substance: FAMOTIDINE
  2. CENTRUM SILVER [Concomitant]
     Active Substance: MINERALS\VITAMINS
  3. TRAVATAN Z [Concomitant]
     Active Substance: TRAVOPROST
  4. SYNTHROID [Concomitant]
     Active Substance: LEVOTHYROXINE SODIUM
  5. PAZEO [Concomitant]
     Active Substance: OLOPATADINE HYDROCHLORIDE
  6. TIMOPTIC [Concomitant]
     Active Substance: TIMOLOL MALEATE
  7. SINGULAIR [Concomitant]
     Active Substance: MONTELUKAST SODIUM
  8. TIMOLOL MALEATE. [Suspect]
     Active Substance: TIMOLOL MALEATE
     Indication: GLAUCOMA
     Dosage: 1 GTT, 2X/DAY LEFT EYE
     Route: 047
     Dates: start: 20160713, end: 20170123
  9. ALLEGRA-D [Suspect]
     Active Substance: FEXOFENADINE\PSEUDOEPHEDRINE
  10. RANITIDINE. [Concomitant]
     Active Substance: RANITIDINE
  11. RESTASIS [Concomitant]
     Active Substance: CYCLOSPORINE
  12. ALLERGY SHOTS [Concomitant]
     Active Substance: UNSPECIFIED INGREDIENT
     Dosage: 4 DOSAGE UNITS, 1X/WEEK
  13. VITAMIN D3 [Concomitant]
     Active Substance: CHOLECALCIFEROL
  14. CRESTOR [Concomitant]
     Active Substance: ROSUVASTATIN CALCIUM
  15. DEXILANT [Concomitant]
     Active Substance: DEXLANSOPRAZOLE
  16. FLONASE [Concomitant]
     Active Substance: FLUTICASONE PROPIONATE
  17. CALTRATE [Concomitant]
     Active Substance: CALCIUM CARBONATE
  18. ECOTRIN [Concomitant]
     Active Substance: ASPIRIN

REACTIONS (7)
  - Infection [Recovered/Resolved]
  - Dyspnoea [Recovered/Resolved]
  - Raynaud^s phenomenon [Recovered/Resolved]
  - Hypothyroidism [Recovered/Resolved]
  - Chest discomfort [Recovered/Resolved]
  - Neoplasm malignant [Recovered/Resolved]
  - Fatigue [Recovered/Resolved]

NARRATIVE: CASE EVENT DATE: 2018
